FAERS Safety Report 11867900 (Version 1)
Quarter: 2015Q4

REPORT INFORMATION
  Report Type: Spontaneous
  Country: US (occurrence: None)
  Receive Date: 20151223
  Receipt Date: 20151223
  Transmission Date: 20160305
  Serious: Yes (Other)
  Sender: FDA-Public Use
  Company Number: None

PATIENT
  Age: 56 Year
  Sex: Female
  Weight: 90.72 kg

DRUGS (14)
  1. POTASSIUM [Concomitant]
     Active Substance: POTASSIUM
  2. LEVOXYL [Concomitant]
     Active Substance: LEVOTHYROXINE SODIUM
  3. CALCIUM [Concomitant]
     Active Substance: CALCIUM
  4. EXCEDRIN [Concomitant]
     Active Substance: ACETAMINOPHEN\ASPIRIN\CAFFEINE
  5. BLACK COHOSH [Concomitant]
     Active Substance: BLACK COHOSH
  6. TIROSINT [Concomitant]
     Active Substance: LEVOTHYROXINE SODIUM
  7. SYNTHROID [Suspect]
     Active Substance: LEVOTHYROXINE SODIUM
     Indication: HYPOTHYROIDISM
     Route: 048
     Dates: start: 20151106
  8. BUPROPION. [Concomitant]
     Active Substance: BUPROPION
  9. VENTOLIN [Concomitant]
     Active Substance: ALBUTEROL SULFATE
  10. MVI [Concomitant]
     Active Substance: VITAMINS
  11. OMEPRAZOLE. [Concomitant]
     Active Substance: OMEPRAZOLE
  12. ADVAIR HFA [Concomitant]
     Active Substance: FLUTICASONE PROPIONATE\SALMETEROL XINAFOATE
  13. ESTRACE [Concomitant]
     Active Substance: ESTRADIOL
  14. LEVOTHYROID/LEVOTHYROXINE [Concomitant]

REACTIONS (4)
  - Blood thyroid stimulating hormone increased [None]
  - Product substitution issue [None]
  - Fatigue [None]
  - Pain [None]

NARRATIVE: CASE EVENT DATE: 20151130
